FAERS Safety Report 20069040 (Version 1)
Quarter: 2021Q4

REPORT INFORMATION
  Report Type: Spontaneous
  Country: GB (occurrence: GB)
  Receive Date: 20211115
  Receipt Date: 20211115
  Transmission Date: 20220303
  Serious: Yes (Hospitalization, Other)
  Sender: FDA-Public Use
  Company Number: GB-ALNYLAM PHARMACEUTICALS, INC.-ALN-2021-002872

PATIENT

DRUGS (1)
  1. ONPATTRO [Suspect]
     Active Substance: PATISIRAN SODIUM
     Indication: Amyloidosis
     Dosage: 15 MILLIGRAM, Q3W
     Route: 042
     Dates: start: 20200513

REACTIONS (4)
  - Seizure [Unknown]
  - Urinary tract infection [Unknown]
  - Malnutrition [Unknown]
  - Poor venous access [Unknown]

NARRATIVE: CASE EVENT DATE: 20211029
